FAERS Safety Report 8845403 (Version 3)
Quarter: 2013Q1

REPORT INFORMATION
  Report Type: Spontaneous
  Country: US (occurrence: None)
  Receive Date: 20121015
  Receipt Date: 20121226
  Transmission Date: 20140127
  Serious: Yes (Other)
  Sender: FDA-Public Use
  Company Number: A0996942A

PATIENT
  Age: 62 Year
  Sex: Female

DRUGS (2)
  1. CALCIUM CARBONATE [Suspect]
     Indication: DYSPEPSIA
     Route: 048
     Dates: start: 20121009, end: 20121009
  2. BLOOD PRESSURE MEDICATION (FORMULATION UNKNOWN) (BLOOD PRESSURE MEDICATION) [Suspect]
     Indication: BLOOD PRESSURE

REACTIONS (7)
  - Drug interaction [None]
  - Drug hypersensitivity [None]
  - Product quality issue [None]
  - Abdominal pain upper [None]
  - No reaction on previous exposure to drug [None]
  - Paralysis [None]
  - Pain [None]
